FAERS Safety Report 9189924 (Version 2)
Quarter: 2013Q1

REPORT INFORMATION
  Report Type: Report from Study
  Country: AU (occurrence: AU)
  Receive Date: 20130326
  Receipt Date: 20130329
  Transmission Date: 20140127
  Serious: Yes (Other)
  Sender: FDA-Public Use
  Company Number: PHHY2013AU028839

PATIENT
  Sex: Male

DRUGS (1)
  1. CLOZARIL [Suspect]
     Dosage: 650 MG, UNK
     Dates: start: 19991025

REACTIONS (3)
  - Schizophrenia [Unknown]
  - Agitation [Unknown]
  - Malaise [Unknown]
